FAERS Safety Report 6956074-7 (Version None)
Quarter: 2010Q3

REPORT INFORMATION
  Report Type: 
  Country: None (occurrence: None)
  Receive Date: 20100830
  Receipt Date: 20091022
  Transmission Date: 20110219
  Serious: No
  Sender: FDA-Public Use
  Company Number: US-AMGEN-US370593

PATIENT
  Sex: Female

DRUGS (7)
  1. NEUPOGEN [Suspect]
     Indication: NEUTROPENIA
     Route: 058
     Dates: start: 20091010
  2. VITAMIN K TAB [Concomitant]
     Dates: start: 20091021
  3. REMERON [Concomitant]
  4. ZOLOFT [Concomitant]
  5. LOVENOX [Concomitant]
  6. WARFARIN SODIUM [Concomitant]
  7. HYDROCORTISONE ACETATE/PRAMOXINE HYDROCHLORIDE [Concomitant]

REACTIONS (1)
  - INFECTION [None]
